FAERS Safety Report 13672364 (Version 2)
Quarter: 2018Q1

REPORT INFORMATION
  Report Type: Spontaneous
  Country: PL (occurrence: PL)
  Receive Date: 20170620
  Receipt Date: 20180131
  Transmission Date: 20180508
  Serious: Yes (Other)
  Sender: FDA-Public Use
  Company Number: PL-MYLANLABS-2017M1023995

PATIENT
  Age: 44 Year
  Sex: Female

DRUGS (14)
  1. PERAZINE [Suspect]
     Active Substance: PERAZINE
     Indication: SCHIZOPHRENIA
     Dosage: UNK
  2. ARIPIPRAZOLE. [Suspect]
     Active Substance: ARIPIPRAZOLE
     Indication: SCHIZOPHRENIA
     Dosage: UNK
  3. CHLORPROTHIXENE [Suspect]
     Active Substance: CHLORPROTHIXENE
     Indication: SCHIZOPHRENIA
     Dosage: UNK
  4. CLOZAPINE. [Suspect]
     Active Substance: CLOZAPINE
     Indication: TARDIVE DYSKINESIA
     Dosage: 350 MG, QD
  5. ZIPRASIDONE. [Suspect]
     Active Substance: ZIPRASIDONE
     Indication: SCHIZOPHRENIA
     Dosage: UNK
  6. QUETIAPINE. [Suspect]
     Active Substance: QUETIAPINE
     Indication: SCHIZOPHRENIA
  7. TETRABENAZINE. [Suspect]
     Active Substance: TETRABENAZINE
     Dosage: 62.5 MG, QD
  8. TETRABENAZINE. [Suspect]
     Active Substance: TETRABENAZINE
     Dosage: 50 MG, QD
  9. ZUCLOPENTHIXOL [Suspect]
     Active Substance: ZUCLOPENTHIXOL
     Indication: SCHIZOPHRENIA
     Dosage: UNK
  10. AMISULPRIDE [Suspect]
     Active Substance: AMISULPRIDE
     Indication: SCHIZOPHRENIA
     Dosage: UNK
  11. TETRABENAZINE. [Suspect]
     Active Substance: TETRABENAZINE
     Indication: TARDIVE DYSKINESIA
     Dosage: 75 MG, QD
  12. CLOZAPINE. [Suspect]
     Active Substance: CLOZAPINE
     Indication: SCHIZOPHRENIA
  13. AMISULPRIDE [Suspect]
     Active Substance: AMISULPRIDE
     Dosage: 800 MG, QD
  14. QUETIAPINE. [Suspect]
     Active Substance: QUETIAPINE
     Indication: TARDIVE DYSKINESIA
     Dosage: 600 MG, QD

REACTIONS (12)
  - Therapy non-responder [Unknown]
  - Product use in unapproved indication [Recovering/Resolving]
  - Tardive dyskinesia [Recovering/Resolving]
  - Anhedonia [Recovering/Resolving]
  - Depressed mood [Recovered/Resolved]
  - Decreased activity [Recovered/Resolved]
  - Apathy [Recovered/Resolved]
  - Somnolence [Recovered/Resolved]
  - Mental disorder [Unknown]
  - Extrapyramidal disorder [Recovering/Resolving]
  - Speech disorder [Unknown]
  - Dysphemia [Unknown]
